FAERS Safety Report 21480671 (Version 1)
Quarter: 2022Q4

REPORT INFORMATION
  Report Type: Spontaneous
  Country: GB (occurrence: None)
  Receive Date: 20221019
  Receipt Date: 20221019
  Transmission Date: 20230113
  Serious: No
  Sender: FDA-Public Use
  Company Number: None

PATIENT
  Age: 43 Year
  Sex: Female
  Weight: 70.65 kg

DRUGS (2)
  1. MONTELUKAST [Suspect]
     Active Substance: MONTELUKAST SODIUM
     Indication: Chronic spontaneous urticaria
     Dates: start: 20220606, end: 20221002
  2. MONTELUKAST [Suspect]
     Active Substance: MONTELUKAST SODIUM

REACTIONS (16)
  - Therapy interrupted [None]
  - Feeling abnormal [None]
  - Deja vu [None]
  - Anxiety [None]
  - Nausea [None]
  - Imperception [None]
  - Dysarthria [None]
  - Disorientation [None]
  - Dissociation [None]
  - Altered state of consciousness [None]
  - Agitation [None]
  - Auditory disorder [None]
  - Mania [None]
  - Emotional disorder [None]
  - Insomnia [None]
  - Visual impairment [None]

NARRATIVE: CASE EVENT DATE: 20221017
